FAERS Safety Report 7755462-9 (Version None)
Quarter: 2011Q3

REPORT INFORMATION
  Report Type: 
  Country: None (occurrence: None)
  Receive Date: 20110916
  Receipt Date: 20110908
  Transmission Date: 20111222
  Serious: Yes (Other)
  Sender: FDA-Public Use
  Company Number: JP-PFIZER INC-2011187096

PATIENT
  Age: 70 Year
  Sex: Male

DRUGS (9)
  1. AMINO ACIDS NOS/CARBOHYDRATES NOS/ELECTROLYTES NOS [Concomitant]
     Dosage: 1000 ML/DAY
     Route: 041
     Dates: start: 20110727, end: 20110729
  2. POTASSIUM CHLORIDE [Concomitant]
     Indication: ELECTROLYTE SUBSTITUTION THERAPY
     Dosage: 20-40 ML/DAY
     Route: 042
     Dates: start: 20110727, end: 20110729
  3. ZOSYN [Suspect]
     Indication: CHOLANGITIS
     Dosage: 4.5 G, 3X/DAY
     Route: 041
     Dates: start: 20110723, end: 20110729
  4. LEVOTHYROXINE SODIUM [Concomitant]
     Indication: HYPOTHYROIDISM
     Dosage: 25 MICROGRAM/DAY
     Dates: start: 20110708
  5. LANSOPRAZOLE [Concomitant]
     Dosage: 30 MG, 1X/DAY
     Route: 048
  6. FOY [Concomitant]
     Dosage: 500-100 MG/DAY
     Route: 041
     Dates: start: 20110725, end: 20110731
  7. ASPARA K [Concomitant]
     Indication: ELECTROLYTE SUBSTITUTION THERAPY
     Dosage: 900 MG, 1X/DAY
     Route: 048
     Dates: start: 20110725, end: 20110727
  8. LASIX [Concomitant]
     Dosage: 20-40 MG/DAY
     Route: 042
     Dates: start: 20110714, end: 20110731
  9. VITAMIN TAB [Concomitant]
     Dosage: 1000ML/DAY
     Route: 041
     Dates: start: 20110727, end: 20110729

REACTIONS (1)
  - BONE MARROW FAILURE [None]
